FAERS Safety Report 7708486-1 (Version None)
Quarter: 2011Q3

REPORT INFORMATION
  Report Type: 
  Country: None (occurrence: None)
  Receive Date: 20110825
  Receipt Date: 20110817
  Transmission Date: 20111222
  Serious: Yes (Other)
  Sender: FDA-Public Use
  Company Number: US-BAYER-2011-060855

PATIENT
  Sex: Female

DRUGS (1)
  1. MIRENA [Suspect]
     Indication: CONTRACEPTION
     Dosage: 20 MCG/24HR, CONT
     Route: 015
     Dates: start: 20110601

REACTIONS (6)
  - MUSCLE SPASMS [None]
  - DIZZINESS [None]
  - ABDOMINAL PAIN LOWER [None]
  - PRESYNCOPE [None]
  - POST PROCEDURAL HAEMORRHAGE [None]
  - ASTHENIA [None]
